FAERS Safety Report 17161586 (Version 1)
Quarter: 2019Q4

REPORT INFORMATION
  Report Type: Spontaneous
  Country: US (occurrence: US)
  Receive Date: 20191217
  Receipt Date: 20191217
  Transmission Date: 20200122
  Serious: No
  Sender: FDA-Public Use
  Company Number: US-ELI_LILLY_AND_COMPANY-US201911010032

PATIENT
  Age: 51 Year
  Sex: Female

DRUGS (3)
  1. HUMALOG [Suspect]
     Active Substance: INSULIN LISPRO
     Indication: BLOOD GLUCOSE ABNORMAL
     Dosage: 1-2 U, WEEKLY (1/W)
     Route: 065
     Dates: start: 201904
  2. HUMALOG [Suspect]
     Active Substance: INSULIN LISPRO
     Dosage: 1-2 U, WEEKLY (1/W)
     Route: 065
  3. METFORMIN [Concomitant]
     Active Substance: METFORMIN HYDROCHLORIDE
     Indication: BLOOD GLUCOSE ABNORMAL
     Dosage: 500 MG, BID

REACTIONS (2)
  - Blood glucose increased [Not Recovered/Not Resolved]
  - Blood glucose decreased [Not Recovered/Not Resolved]
